FAERS Safety Report 17269987 (Version 5)
Quarter: 2020Q4

REPORT INFORMATION
  Report Type: Spontaneous
  Country: US (occurrence: US)
  Receive Date: 20200114
  Receipt Date: 20201119
  Transmission Date: 20210113
  Serious: No
  Sender: FDA-Public Use
  Company Number: US-PFIZER INC-2020012955

PATIENT
  Age: 78 Year
  Sex: Female
  Weight: 70.3 kg

DRUGS (2)
  1. PREMARIN [Suspect]
     Active Substance: ESTROGENS, CONJUGATED
     Dosage: 1 G, 2X/WEEK
     Route: 067
  2. PREMARIN [Suspect]
     Active Substance: ESTROGENS, CONJUGATED
     Dosage: TAKE A VAGINAL SHOT EVERY SUNDAY NIGHT, 2GM

REACTIONS (5)
  - Intentional product misuse [Unknown]
  - Product complaint [Unknown]
  - Dyslexia [Unknown]
  - Product use issue [Unknown]
  - Off label use [Unknown]
